FAERS Safety Report 6792631-9 (Version None)
Quarter: 2010Q2

REPORT INFORMATION
  Report Type: 
  Country: None (occurrence: None)
  Receive Date: 20100624
  Receipt Date: 20080911
  Transmission Date: 20101027
  Serious: Yes (Other)
  Sender: FDA-Public Use
  Company Number: US-PFIZER INC-2008077218

PATIENT
  Age: 48 Year
  Sex: Male

DRUGS (2)
  1. GEODON [Suspect]
     Dosage: DAILY
  2. ANTIDEPRESSANTS [Concomitant]

REACTIONS (2)
  - EXTRAPYRAMIDAL DISORDER [None]
  - TARDIVE DYSKINESIA [None]
